FAERS Safety Report 7918925-9 (Version None)
Quarter: 2011Q4

REPORT INFORMATION
  Report Type: 
  Country: None (occurrence: None)
  Receive Date: 20111116
  Receipt Date: 20111107
  Transmission Date: 20120403
  Serious: Yes (Other)
  Sender: FDA-Public Use
  Company Number: US-ASTRAZENECA-2009UW03515

PATIENT
  Age: 44 Year
  Sex: Female

DRUGS (2)
  1. NEXIUM [Suspect]
     Route: 048
     Dates: start: 20051108
  2. CRESTOR [Suspect]
     Route: 048

REACTIONS (4)
  - BACK PAIN [None]
  - MALAISE [None]
  - DIABETES MELLITUS [None]
  - DRY MOUTH [None]
